FAERS Safety Report 10397516 (Version 2)
Quarter: 2014Q3

REPORT INFORMATION
  Report Type: Spontaneous
  Country: US (occurrence: None)
  Receive Date: 20130815
  Receipt Date: 20140825
  Transmission Date: 20150326
  Serious: Yes (Death, Hospitalization, Other)
  Sender: FDA-Public Use
  Company Number: ADR-2012-01543

PATIENT
  Sex: Female

DRUGS (8)
  1. ORAL BACLOFEN [Suspect]
     Active Substance: BACLOFEN
  2. BUTRANS [Suspect]
     Active Substance: BUPRENORPHINE
  3. CRESTOR [Suspect]
     Active Substance: ROSUVASTATIN CALCIUM
  4. LIORESAL [Suspect]
     Active Substance: BACLOFEN
     Indication: MUSCLE SPASTICITY
  5. FLEXERIL [Suspect]
     Active Substance: CYCLOBENZAPRINE HYDROCHLORIDE
  6. MORPHINE [Suspect]
     Active Substance: MORPHINE
  7. ALLEGRA [Suspect]
     Active Substance: FEXOFENADINE HYDROCHLORIDE
  8. NEXIUM [Suspect]
     Active Substance: ESOMEPRAZOLE MAGNESIUM

REACTIONS (11)
  - Urinary tract infection [None]
  - Implant site extravasation [None]
  - Device dislocation [None]
  - Device ineffective [None]
  - Infection [None]
  - Weight decreased [None]
  - Drug withdrawal syndrome [None]
  - Therapeutic response decreased [None]
  - Device breakage [None]
  - Muscle spasticity [None]
  - Device connection issue [None]
